FAERS Safety Report 10745668 (Version 1)
Quarter: 2015Q1

REPORT INFORMATION
  Report Type: Spontaneous
  Country: US (occurrence: None)
  Receive Date: 20150127
  Receipt Date: 20150127
  Transmission Date: 20150721
  Serious: Yes (Other)
  Sender: FDA-Public Use
  Company Number: None

PATIENT
  Age: 73 Year
  Sex: Male
  Weight: 78.02 kg

DRUGS (1)
  1. BUPROPION 300MG ACTAVIS [Suspect]
     Active Substance: BUPROPION
     Indication: DEPRESSION
     Dates: start: 20150103, end: 20150110

REACTIONS (5)
  - Headache [None]
  - Feeling abnormal [None]
  - Product substitution issue [None]
  - Abdominal pain [None]
  - Product quality issue [None]

NARRATIVE: CASE EVENT DATE: 20150103
